FAERS Safety Report 7342278-0 (Version None)
Quarter: 2011Q1

REPORT INFORMATION
  Report Type: 
  Country: None (occurrence: None)
  Receive Date: 20110310
  Receipt Date: 20100831
  Transmission Date: 20110831
  Serious: Yes (Hospitalization)
  Sender: FDA-Public Use
  Company Number: US-BIOGENIDEC-2010BI013980

PATIENT
  Age: 39 Year
  Sex: Male

DRUGS (13)
  1. PROVIGIL [Concomitant]
     Route: 048
  2. LEXAPRO [Concomitant]
  3. VITAMIN D [Concomitant]
  4. DALFAMPRIDINE [Concomitant]
  5. ZANAFLEX [Concomitant]
     Route: 048
  6. VITAMIN D [Concomitant]
  7. CLONAZEPAM [Concomitant]
  8. LAMISIL [Concomitant]
  9. FLOMAX [Concomitant]
     Route: 048
  10. CLONAZEPAM [Concomitant]
  11. AMBIEN [Concomitant]
  12. TYSABRI [Suspect]
     Indication: MULTIPLE SCLEROSIS
     Route: 042
     Dates: start: 20071001, end: 20100318
  13. CALCIUM [Concomitant]

REACTIONS (5)
  - CANDIDIASIS [None]
  - PNEUMONITIS [None]
  - ATRIAL FIBRILLATION [None]
  - CLOSTRIDIUM DIFFICILE COLITIS [None]
  - PROGRESSIVE MULTIFOCAL LEUKOENCEPHALOPATHY [None]
